FAERS Safety Report 10495289 (Version 1)
Quarter: 2014Q4

REPORT INFORMATION
  Report Type: Spontaneous
  Country: US (occurrence: US)
  Receive Date: 20141003
  Receipt Date: 20141003
  Transmission Date: 20150528
  Serious: Yes (Other)
  Sender: FDA-Public Use
  Company Number: US-PFIZER INC-2014268718

PATIENT
  Sex: Male

DRUGS (1)
  1. VIAGRA [Suspect]
     Active Substance: SILDENAFIL CITRATE
     Dosage: 3 DF, UNK

REACTIONS (3)
  - Erection increased [Unknown]
  - Painful erection [Unknown]
  - Haematospermia [Unknown]

NARRATIVE: CASE EVENT DATE: 20140928
